FAERS Safety Report 9755888 (Version 2)
Quarter: 2014Q1

REPORT INFORMATION
  Report Type: Report from Study
  Country: US (occurrence: US)
  Receive Date: 20131213
  Receipt Date: 20140106
  Transmission Date: 20141002
  Serious: Yes (Other)
  Sender: FDA-Public Use
  Company Number: US-ABBVIE-13P-163-1176856-00

PATIENT
  Sex: Male

DRUGS (1)
  1. HYDROCODONE [Suspect]
     Indication: PAIN

REACTIONS (2)
  - Blindness [Recovered/Resolved]
  - Dizziness [Recovered/Resolved]
